FAERS Safety Report 7107450-3 (Version None)
Quarter: 2010Q4

REPORT INFORMATION
  Report Type: 
  Country: None (occurrence: None)
  Receive Date: 20101109
  Receipt Date: 20101105
  Transmission Date: 20110411
  Serious: Yes (Hospitalization, Other)
  Sender: FDA-Public Use
  Company Number: 2010SP005279

PATIENT
  Age: 35 Year
  Sex: Female
  Weight: 62 kg

DRUGS (7)
  1. FOLLISTIM [Suspect]
     Indication: IN VITRO FERTILISATION
     Dosage: 150 IU;QD;SC
     Route: 058
     Dates: start: 20080305, end: 20080315
  2. NORETHISTERONE [Concomitant]
  3. BUSERECUR [Concomitant]
  4. CHORIONIC GONADOTROPIN [Concomitant]
  5. ESTRANA [Concomitant]
  6. PROGESTERONE [Concomitant]
  7. GLYCORAN [Concomitant]

REACTIONS (3)
  - DRUG EXPOSURE DURING PREGNANCY [None]
  - PREGNANCY [None]
  - PREMATURE RUPTURE OF MEMBRANES [None]
